FAERS Safety Report 8990708 (Version 2)
Quarter: 2013Q1

REPORT INFORMATION
  Report Type: Spontaneous
  Country: US (occurrence: US)
  Receive Date: 20121228
  Receipt Date: 20130213
  Transmission Date: 20140127
  Serious: No
  Sender: FDA-Public Use
  Company Number: US-PFIZER INC-2012327995

PATIENT
  Sex: 0

DRUGS (2)
  1. VIAGRA [Suspect]
     Dosage: 100 MG, UNK
  2. LOPID [Suspect]
     Dosage: 600 MG, UNK

REACTIONS (1)
  - Nasopharyngitis [Recovered/Resolved]
